FAERS Safety Report 4325972-5 (Version None)
Quarter: 2004Q1

REPORT INFORMATION
  Report Type: 
  Country: None (occurrence: None)
  Receive Date: 20040329
  Receipt Date: 20040326
  Transmission Date: 20041129
  Serious: Yes (Disabling)
  Sender: FDA-Public Use
  Company Number: US-GLAXOSMITHKLINE-A0504811A

PATIENT
  Age: 3 Year
  Sex: Female

DRUGS (2)
  1. AUGMENTIN ES-600 [Suspect]
     Indication: URINARY TRACT INFECTION
     Dosage: 1TSP TWICE PER DAY
     Route: 048
     Dates: start: 20040325
  2. NO CONCURRENT MEDICATION [Concomitant]

REACTIONS (2)
  - MUSCLE CRAMP [None]
  - PAIN [None]
